FAERS Safety Report 9299966 (Version 1)
Quarter: 2013Q1

REPORT INFORMATION
  Report Type: Spontaneous
  Country: US (occurrence: None)
  Receive Date: 20121231
  Receipt Date: 20121231
  Transmission Date: 20140127
  Serious: Yes (Hospitalization, Other)
  Sender: FDA-Public Use
  Company Number: RB-45881-2012

PATIENT
  Age: 48 Year
  Sex: Female

DRUGS (1)
  1. SUBOXONE [Suspect]
     Indication: DRUG DEPENDENCE
     Route: 060
     Dates: start: 2012, end: 2012

REACTIONS (12)
  - Hallucination [None]
  - Dyspnoea [None]
  - Alcohol use [None]
  - Gastrooesophageal reflux disease [None]
  - Malaise [None]
  - Underdose [None]
  - Hypertension [None]
  - Drug withdrawal syndrome [None]
  - Decreased appetite [None]
  - Abdominal pain [None]
  - Stress [None]
  - Anxiety [None]
